FAERS Safety Report 5411719-8 (Version None)
Quarter: 2007Q3

REPORT INFORMATION
  Report Type: 
  Country: None (occurrence: None)
  Receive Date: 20070812
  Receipt Date: 20070801
  Transmission Date: 20080115
  Serious: Yes (Other)
  Sender: FDA-Public Use
  Company Number: US-TYCO HEALTHCARE/MALLINCKRODT-T200700871

PATIENT

DRUGS (5)
  1. METHADONE HCL [Suspect]
     Indication: PAIN
     Dosage: 30 MG, TID
     Route: 048
     Dates: start: 20070201
  2. PERCOCET [Concomitant]
     Indication: PAIN
  3. SINGULAIR                          /01362601/ [Concomitant]
     Indication: HYPERSENSITIVITY
  4. ALLEGRA [Concomitant]
     Indication: HYPERSENSITIVITY
  5. LIDODERM [Concomitant]
     Indication: PAIN
     Route: 061

REACTIONS (3)
  - CONVULSION [None]
  - VISION BLURRED [None]
  - WEIGHT INCREASED [None]
